FAERS Safety Report 14677750 (Version 1)
Quarter: 2018Q1

REPORT INFORMATION
  Report Type: Spontaneous
  Country: US (occurrence: US)
  Receive Date: 20180325
  Receipt Date: 20180325
  Transmission Date: 20180509
  Serious: No
  Sender: FDA-Public Use
  Company Number: US-BAXTER-2018BAX009008

PATIENT
  Sex: Female

DRUGS (1)
  1. STERILE WATER [Suspect]
     Active Substance: WATER
     Indication: PRODUCT USED FOR UNKNOWN INDICATION
     Route: 065

REACTIONS (5)
  - Wound [Unknown]
  - Limb injury [Unknown]
  - Skin exfoliation [Unknown]
  - Arthritis [Unknown]
  - Blister [Unknown]
